FAERS Safety Report 9462210 (Version 1)
Quarter: 2013Q3

REPORT INFORMATION
  Report Type: Spontaneous
  Country: US (occurrence: None)
  Receive Date: 20130815
  Receipt Date: 20130815
  Transmission Date: 20140515
  Serious: No
  Sender: FDA-Public Use
  Company Number: None

PATIENT
  Age: 68 Year
  Sex: Male
  Weight: 92.08 kg

DRUGS (4)
  1. DOCETAXEL [Suspect]
     Indication: BRONCHIAL CARCINOMA
     Route: 042
  2. DOCETAXEL [Suspect]
     Indication: LUNG NEOPLASM MALIGNANT
     Route: 042
  3. ALOXI [Concomitant]
  4. DEXAMETHASONE [Concomitant]

REACTIONS (1)
  - Drug hypersensitivity [None]
